FAERS Safety Report 8434795-7 (Version None)
Quarter: 2012Q2

REPORT INFORMATION
  Report Type: 
  Country: None (occurrence: None)
  Receive Date: 20120323
  Receipt Date: 20110812
  Transmission Date: 20120825
  Serious: Yes (Hospitalization, Disabling)
  Sender: FDA-Public Use
  Company Number: 163-21880-11060222

PATIENT
  Age: 71 Year
  Sex: Male
  Weight: 63.5 kg

DRUGS (9)
  1. OMEPRAZOLE [Concomitant]
  2. SIMVASTATIN [Concomitant]
  3. CLONAZEPAM [Concomitant]
  4. REVLIMID [Suspect]
     Indication: MYELODYSPLASTIC SYNDROME
     Dosage: 10 MG, 1 IN 1 D, PO
     Route: 048
     Dates: start: 20110531, end: 20110720
  5. PAROXETINE HCL [Concomitant]
  6. HEMEHON (FERRIC HYDROXIDE POLYMALTOSE COMPLEX) [Concomitant]
  7. TEMAZEPAM [Concomitant]
  8. NEUPOGEN [Concomitant]
  9. NORVASC [Concomitant]

REACTIONS (3)
  - ASTHENIA [None]
  - FATIGUE [None]
  - SOMNOLENCE [None]
